FAERS Safety Report 18235663 (Version 1)
Quarter: 2020Q3

REPORT INFORMATION
  Report Type: Spontaneous
  Country: CA (occurrence: CA)
  Receive Date: 20200905
  Receipt Date: 20200905
  Transmission Date: 20201103
  Serious: Yes (Life-Threatening, Other)
  Sender: FDA-Public Use
  Company Number: CA-ACCORD-199526

PATIENT
  Age: 14 Year
  Sex: Female
  Weight: 93 kg

DRUGS (18)
  1. CYTARABINE. [Suspect]
     Active Substance: CYTARABINE
     Indication: ACUTE LYMPHOCYTIC LEUKAEMIA RECURRENT
     Dosage: 1 EVERY 12 HOURS
     Route: 042
  2. ONDANSETRON [Concomitant]
     Active Substance: ONDANSETRON
  3. SANDOZ POSACONAZOLE [Concomitant]
  4. HEPARIN [Concomitant]
     Active Substance: HEPARIN SODIUM
  5. ENOXAPARIN [Concomitant]
     Active Substance: ENOXAPARIN
  6. PENTAMIDINE [Concomitant]
     Active Substance: PENTAMIDINE
     Dosage: STRENGTH: 300MG/VIAL BP
  7. RANITIDINE. [Concomitant]
     Active Substance: RANITIDINE
  8. LEUPRORELIN [Concomitant]
     Active Substance: LEUPROLIDE ACETATE
  9. MORPHINE [Concomitant]
     Active Substance: MORPHINE
  10. OLANZAPINE. [Concomitant]
     Active Substance: OLANZAPINE
  11. PARACETAMOL [Concomitant]
     Active Substance: ACETAMINOPHEN
  12. POTASSIUM [Concomitant]
     Active Substance: POTASSIUM
     Dosage: SOLUTION INTRAVENOUS
     Route: 042
  13. AMITRIPTYLINE [Concomitant]
     Active Substance: AMITRIPTYLINE
  14. ALTEPLASE. [Concomitant]
     Active Substance: ALTEPLASE
     Dosage: LIQUID INTRAVENOUS
     Route: 042
  15. NORETHISTERONE [Concomitant]
     Active Substance: NORETHINDRONE
  16. METHOTREXATE. [Suspect]
     Active Substance: METHOTREXATE
     Indication: ACUTE LYMPHOCYTIC LEUKAEMIA RECURRENT
     Dosage: ONCE
     Route: 037
  17. MACROGOL [Concomitant]
     Active Substance: POLYETHYLENE GLYCOLS
  18. DEXAMETHASONE. [Concomitant]
     Active Substance: DEXAMETHASONE
     Dosage: LIQUID INTRA? ARTICULAR
     Route: 014

REACTIONS (2)
  - Transfusion [Unknown]
  - Aplastic anaemia [Recovered/Resolved]
